FAERS Safety Report 10358608 (Version 1)
Quarter: 2014Q3

REPORT INFORMATION
  Report Type: Spontaneous
  Country: US (occurrence: US)
  Receive Date: 20140803
  Receipt Date: 20140803
  Transmission Date: 20150326
  Serious: Yes (Hospitalization, Other)
  Sender: FDA-Public Use
  Company Number: US-ELI_LILLY_AND_COMPANY-US201407009163

PATIENT
  Sex: Female

DRUGS (6)
  1. NITROFURANTOIN. [Concomitant]
     Active Substance: NITROFURANTOIN
  2. HUMALOG [Suspect]
     Active Substance: INSULIN LISPRO
     Indication: TYPE 2 DIABETES MELLITUS
     Dosage: UNK, TID
     Route: 065
  3. GLUCOPHAGE [Concomitant]
     Active Substance: METFORMIN HYDROCHLORIDE
  4. HUMULIN N [Suspect]
     Active Substance: INSULIN HUMAN
     Indication: TYPE 2 DIABETES MELLITUS
     Dosage: UNK
     Route: 065
  5. LEVEMIR [Concomitant]
     Active Substance: INSULIN DETEMIR
     Dosage: UNK, EACH EVENING
  6. METFORMIN [Concomitant]
     Active Substance: METFORMIN HYDROCHLORIDE

REACTIONS (21)
  - Nephrolithiasis [Unknown]
  - Inappropriate schedule of drug administration [Unknown]
  - Bile duct obstruction [Unknown]
  - Urinary tract infection [Unknown]
  - Asthenia [Unknown]
  - Nephrolithiasis [Unknown]
  - Injection site pain [Unknown]
  - Gastrointestinal disorder [Unknown]
  - Staphylococcal infection [Unknown]
  - Weight increased [Unknown]
  - Panic attack [Unknown]
  - Blood glucose increased [Unknown]
  - Myocardial infarction [Unknown]
  - Feeling abnormal [Unknown]
  - Fatigue [Unknown]
  - Malaise [Unknown]
  - Retinal disorder [Unknown]
  - Lower limb fracture [Unknown]
  - Sepsis [Unknown]
  - Depressed level of consciousness [Unknown]
  - Incontinence [Unknown]

NARRATIVE: CASE EVENT DATE: 2000
